FAERS Safety Report 14593074 (Version 1)
Quarter: 2018Q1

REPORT INFORMATION
  Report Type: Spontaneous
  Country: US (occurrence: US)
  Receive Date: 20180302
  Receipt Date: 20180302
  Transmission Date: 20180509
  Serious: Yes (Hospitalization)
  Sender: FDA-Public Use
  Company Number: None

PATIENT
  Age: 87 Year
  Sex: Female
  Weight: 70.31 kg

DRUGS (14)
  1. CALCIUM [Concomitant]
     Active Substance: CALCIUM
  2. MAGNESIUM [Concomitant]
     Active Substance: MAGNESIUM
  3. CARVEDILOL. [Concomitant]
     Active Substance: CARVEDILOL
  4. SIMVASTATIN. [Concomitant]
     Active Substance: SIMVASTATIN
  5. VITAMIN D3 [Concomitant]
     Active Substance: CHOLECALCIFEROL
  6. HYDROCHLOROT [Concomitant]
     Active Substance: HYDROCHLOROTHIAZIDE
  7. MELOXICAM. [Concomitant]
     Active Substance: MELOXICAM
  8. VITAMIN E [Concomitant]
     Active Substance: .ALPHA.-TOCOPHEROL
  9. VITAMIN C/ROSE HIP [Concomitant]
  10. TRANDOL [Concomitant]
  11. POT CHLORIDE [Concomitant]
     Active Substance: POTASSIUM CHLORIDE
  12. ASPERIN [Concomitant]
  13. CRANBERRY PLUS VIT C [Concomitant]
  14. PROLIA [Suspect]
     Active Substance: DENOSUMAB
     Indication: OSTEOPOROSIS
     Dosage: SHOT EVERY 6 MO.
     Dates: start: 20160729, end: 20170630

REACTIONS (1)
  - Hip surgery [None]

NARRATIVE: CASE EVENT DATE: 20170220
